FAERS Safety Report 25863238 (Version 1)
Quarter: 2025Q3

REPORT INFORMATION
  Report Type: Report from Study
  Country: GB (occurrence: GB)
  Receive Date: 20250930
  Receipt Date: 20250930
  Transmission Date: 20251021
  Serious: Yes (Hospitalization)
  Sender: SAMSUNG BIOEPIS
  Company Number: GB-SAMSUNG BIOEPIS-SB-2025-30653

PATIENT
  Age: 56 Year
  Sex: Female

DRUGS (1)
  1. IMRALDI [Suspect]
     Active Substance: ADALIMUMAB
     Indication: Psoriatic arthropathy
     Dosage: 40MG/0.8ML;
     Route: 058

REACTIONS (11)
  - Myocardial infarction [Unknown]
  - Malaise [Unknown]
  - Anxiety [Unknown]
  - Vertigo [Unknown]
  - Chest pain [Unknown]
  - Psoriasis [Unknown]
  - Nail discolouration [Unknown]
  - Onychomadesis [Unknown]
  - Fatigue [Unknown]
  - Gastritis [Not Recovered/Not Resolved]
  - Dyspnoea [Not Recovered/Not Resolved]
